FAERS Safety Report 6069778-8 (Version None)
Quarter: 2009Q1

REPORT INFORMATION
  Report Type: 
  Country: None (occurrence: None)
  Receive Date: 20090204
  Receipt Date: 20090204
  Transmission Date: 20090719
  Serious: No
  Sender: FDA-Public Use
  Company Number: None

PATIENT
  Age: 61 Year
  Sex: Male
  Weight: 107.5025 kg

DRUGS (1)
  1. ACTOPLUS MET [Suspect]
     Dosage: ONCE DAY

REACTIONS (1)
  - ATRIAL FIBRILLATION [None]
